FAERS Safety Report 9889425 (Version 1)
Quarter: 2014Q1

REPORT INFORMATION
  Report Type: Spontaneous
  Country: CA (occurrence: CA)
  Receive Date: 20140211
  Receipt Date: 20140211
  Transmission Date: 20141002
  Serious: Yes (Death)
  Sender: FDA-Public Use
  Company Number: PHHY2014CA013913

PATIENT
  Age: 32 Month
  Sex: Male

DRUGS (6)
  1. CARBOPLATIN [Suspect]
     Dosage: 17 MG/KG, PER DAY
  2. THIOTEPA [Suspect]
     Dosage: 10 MG/KG, PER DAY
  3. VINCRISTINE [Concomitant]
     Route: 042
  4. ETOPOSIDE [Concomitant]
     Route: 042
  5. CYCLOPHOSPHAMIDE [Concomitant]
  6. CISPLATIN [Concomitant]
     Route: 042

REACTIONS (4)
  - Pulmonary arteriopathy [Fatal]
  - Respiratory distress [Fatal]
  - Pulmonary arterial hypertension [Fatal]
  - Cardiac failure congestive [Fatal]
